FAERS Safety Report 16935787 (Version 1)
Quarter: 2019Q4

REPORT INFORMATION
  Report Type: Report from Study
  Country: US (occurrence: US)
  Receive Date: 20191018
  Receipt Date: 20191018
  Transmission Date: 20200122
  Serious: Yes (Hospitalization, Other)
  Sender: FDA-Public Use
  Company Number: US-ASTRAZENECA-2018SE32424

PATIENT
  Age: 24333 Day
  Sex: Female
  Weight: 99.3 kg

DRUGS (4)
  1. LYNPARZA [Suspect]
     Active Substance: OLAPARIB
     Indication: OVARIAN CANCER
     Route: 048
     Dates: start: 201709
  2. LYNPARZA [Suspect]
     Active Substance: OLAPARIB
     Indication: GENE MUTATION
     Route: 048
     Dates: start: 201709
  3. COUMADIN [Concomitant]
     Active Substance: WARFARIN SODIUM
     Indication: PULMONARY EMBOLISM
     Dosage: 7.5 OR 10 MG DAILY
     Route: 048
     Dates: start: 201709
  4. SENNA/DOCUSATE [Concomitant]
     Indication: FAECES HARD
     Dosage: 8.6/50 MG TWO TIMES A DAY
     Route: 048
     Dates: start: 201803

REACTIONS (3)
  - Hypophagia [Recovered/Resolved]
  - Abdominal hernia obstructive [Unknown]
  - Product dose omission [Recovered/Resolved]

NARRATIVE: CASE EVENT DATE: 20180227
